FAERS Safety Report 26030481 (Version 1)
Quarter: 2025Q4

REPORT INFORMATION
  Report Type: Spontaneous
  Country: US (occurrence: None)
  Receive Date: 20251112
  Receipt Date: 20251112
  Transmission Date: 20260117
  Serious: Yes (Life-Threatening, Hospitalization)
  Sender: ENDO
  Company Number: US-ENDO USA, INC.-2025-002233

PATIENT
  Age: 30 Year
  Sex: Female

DRUGS (2)
  1. QUETIAPINE FUMARATE [Suspect]
     Active Substance: QUETIAPINE FUMARATE
     Indication: Product used for unknown indication
     Dosage: UNK UNKNOWN, UNKNOWN
  2. LORAZEPAM [Concomitant]
     Active Substance: LORAZEPAM
     Indication: Product used for unknown indication
     Dosage: UNK UNKNOWN, UNKNOWN

REACTIONS (12)
  - Status epilepticus [Recovering/Resolving]
  - Clonus [Recovering/Resolving]
  - Electrocardiogram QRS complex prolonged [Recovering/Resolving]
  - Oxygen saturation decreased [Recovering/Resolving]
  - Hyperthermia [Recovering/Resolving]
  - Myoclonus [Recovering/Resolving]
  - Nystagmus [Recovering/Resolving]
  - Mental status changes [Recovering/Resolving]
  - Electrocardiogram QT prolonged [Recovering/Resolving]
  - Sinus tachycardia [Recovering/Resolving]
  - Somnolence [Recovering/Resolving]
  - Overdose [Recovered/Resolved]
